FAERS Safety Report 4269717-6 (Version None)
Quarter: 2004Q1

REPORT INFORMATION
  Report Type: 
  Country: None (occurrence: None)
  Receive Date: 20040112
  Receipt Date: 20031230
  Transmission Date: 20041129
  Serious: Yes (Hospitalization, Disabling, Other)
  Sender: FDA-Public Use
  Company Number: 2002056204

PATIENT
  Age: 42 Year
  Sex: Male
  Weight: 117.9352 kg

DRUGS (11)
  1. LOPID [Suspect]
     Indication: HYPERLIPIDAEMIA
     Dosage: 1200 MG (BID), ORAL
     Route: 048
     Dates: start: 19920101
  2. LIPITOR [Suspect]
     Indication: HYPERLIPIDAEMIA
     Dosage: 20 MG (DAILY), ORAL
     Route: 048
     Dates: start: 19970214, end: 19970626
  3. CERIVASTATIN SODIUM (CERIVASTATIN SODIUM) [Suspect]
     Indication: HYPERLIPIDAEMIA
     Dosage: 0.3 MG
     Dates: start: 19980717
  4. FENOFIBRATE [Suspect]
     Indication: HYPERLIPIDAEMIA
     Dates: start: 19980717
  5. NICOTINIC ACID [Suspect]
     Indication: HYPERLIPIDAEMIA
     Dates: end: 19990228
  6. METOPROLOL SUCCINATE [Suspect]
     Indication: HYPERTENSION
     Dates: end: 20000821
  7. ACETAMINOPHEN [Concomitant]
  8. IBUPROFEN [Concomitant]
  9. FLUVASTATIN SODUIM (FLUVASTATIM SODIUM) [Concomitant]
  10. ERYTHROMYCIN [Concomitant]
  11. UNSPECIFIED HEART MEDICATIONS [Concomitant]

REACTIONS (18)
  - ABDOMINAL PAIN UPPER [None]
  - ANAL DISCOMFORT [None]
  - ANAL FISSURE [None]
  - ARTHRALGIA [None]
  - BLOOD TRIGLYCERIDES INCREASED [None]
  - CARDIAC DISORDER [None]
  - CARDIOMYOPATHY [None]
  - EMOTIONAL DISORDER [None]
  - EPIGASTRIC DISCOMFORT [None]
  - INJURY [None]
  - LIVER FUNCTION TEST ABNORMAL [None]
  - MYOPATHY [None]
  - NAUSEA [None]
  - NECK PAIN [None]
  - PROCTALGIA [None]
  - RECTAL HAEMORRHAGE [None]
  - RENAL DISORDER [None]
  - RHABDOMYOLYSIS [None]
